FAERS Safety Report 8519188-6 (Version None)
Quarter: 2012Q3

REPORT INFORMATION
  Report Type: 
  Country: None (occurrence: None)
  Receive Date: 20120718
  Receipt Date: 20120709
  Transmission Date: 20120928
  Serious: Yes (Hospitalization)
  Sender: FDA-Public Use
  Company Number: US-ELI_LILLY_AND_COMPANY-US201207003002

PATIENT
  Sex: Female

DRUGS (4)
  1. HUMULIN R [Suspect]
     Dosage: 10 U, EACH EVENING
  2. HUMALOG [Suspect]
     Dosage: UNK
     Dates: end: 20120709
  3. HUMALOG [Suspect]
     Indication: DIABETES MELLITUS
     Dosage: 20 U, TID
  4. HUMULIN R [Suspect]
     Indication: DIABETES MELLITUS
     Dosage: 30 U, EACH MORNING

REACTIONS (10)
  - FALL [None]
  - DYSSTASIA [None]
  - ASTHENIA [None]
  - HEPATIC ENZYME INCREASED [None]
  - DRUG DISPENSING ERROR [None]
  - LOSS OF CONSCIOUSNESS [None]
  - HYPERHIDROSIS [None]
  - THIRST [None]
  - HEPATIC PAIN [None]
  - ABDOMINAL DISTENSION [None]
